FAERS Safety Report 23003910 (Version 4)
Quarter: 2023Q4

REPORT INFORMATION
  Report Type: Spontaneous
  Country: US (occurrence: US)
  Receive Date: 20230928
  Receipt Date: 20231130
  Transmission Date: 20240109
  Serious: No
  Sender: FDA-Public Use
  Company Number: US-GSK-US2023131728

PATIENT
  Sex: Male

DRUGS (3)
  1. NUCALA [Suspect]
     Active Substance: MEPOLIZUMAB
     Indication: Product used for unknown indication
     Dosage: UNK
  2. NUCALA [Suspect]
     Active Substance: MEPOLIZUMAB
     Indication: Product used for unknown indication
     Dosage: UNK
  3. NUCALA [Suspect]
     Active Substance: MEPOLIZUMAB
     Indication: Product used for unknown indication
     Dosage: UNK

REACTIONS (7)
  - Asthma [Unknown]
  - Wheezing [Unknown]
  - Insomnia [Unknown]
  - Dyspnoea [Unknown]
  - Therapy cessation [Unknown]
  - Product dose omission issue [Unknown]
  - Product communication issue [Unknown]
